FAERS Safety Report 5357443-1 (Version None)
Quarter: 2007Q2

REPORT INFORMATION
  Report Type: 
  Country: None (occurrence: None)
  Receive Date: 20070530
  Receipt Date: 20061016
  Transmission Date: 20071010
  Serious: Yes (Hospitalization)
  Sender: FDA-Public Use
  Company Number: US200607002606

PATIENT
  Age: 42 Year
  Sex: Female
  Weight: 71.2 kg

DRUGS (1)
  1. ZYPREXA [Suspect]
     Dates: start: 20000101, end: 20040101

REACTIONS (1)
  - PANCREATITIS [None]
